FAERS Safety Report 5646031-5 (Version None)
Quarter: 2008Q1

REPORT INFORMATION
  Report Type: 
  Country: None (occurrence: None)
  Receive Date: 20080229
  Receipt Date: 20080219
  Transmission Date: 20080703
  Serious: Yes (Other)
  Sender: FDA-Public Use
  Company Number: GB-PFIZER INC-2008016277

PATIENT
  Sex: Male

DRUGS (2)
  1. EPANUTIN [Suspect]
     Indication: EPILEPSY
     Route: 048
  2. IBUPROFEN [Interacting]
     Indication: HAEMORRHOIDS

REACTIONS (3)
  - CONTUSION [None]
  - DRUG INTERACTION [None]
  - PERSONALITY CHANGE [None]
